FAERS Safety Report 10399268 (Version 2)
Quarter: 2014Q3

REPORT INFORMATION
  Report Type: Spontaneous
  Country: AU (occurrence: AU)
  Receive Date: 20140821
  Receipt Date: 20140821
  Transmission Date: 20150326
  Serious: Yes (Life-Threatening)
  Sender: FDA-Public Use
  Company Number: AU-ALLERGAN-1417831US

PATIENT
  Age: 79 Year
  Sex: Female
  Weight: 60 kg

DRUGS (6)
  1. TENORMIN [Concomitant]
     Active Substance: ATENOLOL
  2. TENOPT [Concomitant]
     Dosage: UNK
  3. AROPAX [Concomitant]
     Active Substance: PAROXETINE HYDROCHLORIDE
     Dosage: UNK
  4. LUMIGAN [Suspect]
     Active Substance: BIMATOPROST
     Indication: GLAUCOMA
     Dosage: 1 DOSE UNSPECIFIED DAILY
     Route: 047
     Dates: start: 20030802, end: 20040315
  5. LOSEC [Concomitant]
     Active Substance: OMEPRAZOLE
  6. FELODUR [Concomitant]
     Active Substance: FELODIPINE

REACTIONS (3)
  - Confusional state [Recovered/Resolved]
  - Depression [Recovered/Resolved]
  - Growth of eyelashes [Recovered/Resolved]

NARRATIVE: CASE EVENT DATE: 20040101
